FAERS Safety Report 10577434 (Version 1)
Quarter: 2014Q4

REPORT INFORMATION
  Report Type: Report from Study
  Country: BR (occurrence: BR)
  Receive Date: 20141111
  Receipt Date: 20141111
  Transmission Date: 20150529
  Serious: Yes (Other)
  Sender: FDA-Public Use
  Company Number: BR-ABBVIE-14K-020-1304930-00

PATIENT
  Sex: Female
  Weight: 89 kg

DRUGS (3)
  1. HUMIRA [Suspect]
     Active Substance: ADALIMUMAB
     Indication: PSORIATIC ARTHROPATHY
     Dosage: UNSPECIFIED DOSE
     Route: 058
     Dates: start: 20080103, end: 201311
  2. UNSPECIFIED ANTIINFLAMMATORY/MUSCLE RELAXANT (COMPOUND DRUG) [Concomitant]
     Indication: FIBROMYALGIA
     Dosage: ONE TABLET IN THE MORNING AND ANOTHER AT NIGHT
     Route: 048
     Dates: start: 20040101
  3. OMEPRAZOLE. [Concomitant]
     Active Substance: OMEPRAZOLE
     Indication: GASTRIC DISORDER
     Dosage: IN THE MORNING
     Route: 048
     Dates: start: 20040101

REACTIONS (2)
  - Systemic lupus erythematosus [Recovering/Resolving]
  - Depression [Unknown]

NARRATIVE: CASE EVENT DATE: 2012
